FAERS Safety Report 16697222 (Version 1)
Quarter: 2019Q4

REPORT INFORMATION
  Report Type: Spontaneous
  Country: US (occurrence: US)
  Receive Date: 20190812
  Receipt Date: 20190812
  Transmission Date: 20200122
  Serious: Yes (Other)
  Sender: FDA-Public Use
  Company Number: None

PATIENT
  Age: 93 Year
  Sex: Female

DRUGS (1)
  1. LAMOTRIGINE. [Suspect]
     Active Substance: LAMOTRIGINE
     Indication: FUNGAL INFECTION
     Route: 048
     Dates: start: 20190625, end: 20190628

REACTIONS (6)
  - Nausea [None]
  - Therapy cessation [None]
  - Wrong product administered [None]
  - Product prescribing error [None]
  - Product dispensing error [None]
  - Asthenia [None]

NARRATIVE: CASE EVENT DATE: 20190628
